FAERS Safety Report 7074352-0 (Version None)
Quarter: 2010Q4

REPORT INFORMATION
  Report Type: 
  Country: None (occurrence: None)
  Receive Date: 20101029
  Receipt Date: 20101025
  Transmission Date: 20110411
  Serious: Yes (Hospitalization)
  Sender: FDA-Public Use
  Company Number: FR-ROCHE-736433

PATIENT
  Sex: Female

DRUGS (9)
  1. ROCEPHIN [Suspect]
     Indication: SEPTIC SHOCK
     Dosage: DRUG: ROCEPHINE 1G, POWDER FOR INJECTABLE SOLUTION, DOSE: 1 DOSE FORM
     Route: 042
     Dates: start: 20100417, end: 20100426
  2. CIFLOX [Suspect]
     Dosage: DRUG: CIFLOX 200MG/100ML, SOLUTION FOR INFUSION
     Route: 042
     Dates: start: 20100420, end: 20100424
  3. FLAGYL [Suspect]
     Route: 048
     Dates: start: 20100417, end: 20100426
  4. IMOVANE [Concomitant]
     Dosage: STARTED BEFORE 25 APRIL 2010
     Route: 048
  5. IMOVANE [Concomitant]
     Route: 048
     Dates: start: 20100428
  6. EQUANIL [Concomitant]
     Indication: ANXIETY
     Dosage: STARTED BEFORE 25 APRIL 2010
     Route: 048
  7. EQUANIL [Concomitant]
     Route: 048
     Dates: start: 20100429
  8. TIAPRIDAL [Concomitant]
     Dosage: STARTED BEFORE 25 APRIL 2010
     Route: 048
  9. TIAPRIDAL [Concomitant]
     Dosage: FORM: DIVISIBLE TABLET
     Route: 048
     Dates: start: 20100427, end: 20100429

REACTIONS (1)
  - AGITATION [None]
